FAERS Safety Report 14294070 (Version 1)
Quarter: 2017Q4

REPORT INFORMATION
  Report Type: Spontaneous
  Country: IT (occurrence: IT)
  Receive Date: 20171217
  Receipt Date: 20171217
  Transmission Date: 20180321
  Serious: Yes (Other)
  Sender: FDA-Public Use
  Company Number: IT-CIPLA LTD.-2017IT25773

PATIENT

DRUGS (4)
  1. OKI [Suspect]
     Active Substance: KETOPROFEN LYSINE
     Indication: HEADACHE
     Dosage: 1 DF, UNK
     Route: 048
     Dates: start: 20170801, end: 20170831
  2. FLOMAX [Suspect]
     Active Substance: TAMSULOSIN HYDROCHLORIDE
     Indication: COUGH
     Dosage: 1 DF, UNK
     Route: 048
     Dates: start: 20170815, end: 20170831
  3. SUMATRIPTAN. [Suspect]
     Active Substance: SUMATRIPTAN
     Indication: HEADACHE
     Dosage: 1 DF, PER DAY
     Route: 055
     Dates: start: 20170824, end: 20170831
  4. LANSOPRAZOLE. [Concomitant]
     Active Substance: LANSOPRAZOLE
     Dosage: UNK
     Route: 065

REACTIONS (4)
  - Off label use [Recovering/Resolving]
  - Presyncope [Recovering/Resolving]
  - Abdominal pain upper [Recovering/Resolving]
  - Hyperhidrosis [Recovering/Resolving]

NARRATIVE: CASE EVENT DATE: 20170831
